FAERS Safety Report 4378452-5 (Version None)
Quarter: 2004Q2

REPORT INFORMATION
  Report Type: 
  Country: None (occurrence: None)
  Receive Date: 20040609
  Receipt Date: 20040527
  Transmission Date: 20050107
  Serious: Yes (Other)
  Sender: FDA-Public Use
  Company Number: US-JNJFOC-20040600259

PATIENT
  Age: 70 Year
  Sex: Female
  Weight: 121.564 kg

DRUGS (8)
  1. REMICADE [Suspect]
     Indication: RHEUMATOID ARTHRITIS
     Dosage: 300 MG, INTRAVENOUS
     Route: 042
     Dates: start: 20040301
  2. SULFASALAZINE [Concomitant]
  3. INSULIN [Concomitant]
  4. ASPIRIN TAB [Concomitant]
  5. PRILOSEC [Concomitant]
  6. TOPROL (METOPROLOL SUCCINATE) [Concomitant]
  7. DOXEPIN HCL [Concomitant]
  8. CRESTOR (ALL OTHER THERAPEUTIC PRODUCTS) [Concomitant]

REACTIONS (2)
  - GALLBLADDER OPERATION [None]
  - LIVER FUNCTION TEST ABNORMAL [None]
